FAERS Safety Report 6973831-1 (Version None)
Quarter: 2010Q3

REPORT INFORMATION
  Report Type: 
  Country: None (occurrence: None)
  Receive Date: 20100909
  Receipt Date: 20100831
  Transmission Date: 20110219
  Serious: Yes (Hospitalization)
  Sender: FDA-Public Use
  Company Number: A0880341A

PATIENT
  Age: 64 Year
  Sex: Male

DRUGS (1)
  1. AVANDIA [Suspect]
     Dates: start: 20050601, end: 20080418

REACTIONS (2)
  - CARDIAC FAILURE CONGESTIVE [None]
  - DEPRESSION [None]
